FAERS Safety Report 16648703 (Version 2)
Quarter: 2019Q3

REPORT INFORMATION
  Report Type: Spontaneous
  Country: BR (occurrence: BR)
  Receive Date: 20190730
  Receipt Date: 20190802
  Transmission Date: 20191004
  Serious: Yes (Death, Hospitalization, Other)
  Sender: FDA-Public Use
  Company Number: BR-BIOGEN-2019BI00769044

PATIENT
  Age: 9 Month
  Sex: Male

DRUGS (1)
  1. SPINRAZA [Suspect]
     Active Substance: NUSINERSEN
     Indication: SPINAL MUSCULAR ATROPHY
     Route: 037

REACTIONS (6)
  - Hypoxia [Fatal]
  - Diarrhoea [Unknown]
  - Pneumonia [Fatal]
  - Cardio-respiratory arrest [Fatal]
  - Respiratory tract infection [Fatal]
  - Encephalopathy [Unknown]
